FAERS Safety Report 5356810-X (Version None)
Quarter: 2007Q2

REPORT INFORMATION
  Report Type: 
  Country: None (occurrence: None)
  Receive Date: 20070614
  Receipt Date: 20070607
  Transmission Date: 20071010
  Serious: Yes (Other)
  Sender: FDA-Public Use
  Company Number: BR-ROCHE-501780

PATIENT
  Age: 40 Year
  Sex: Female
  Weight: 78 kg

DRUGS (2)
  1. RIVOTRIL [Suspect]
     Indication: INSOMNIA
     Route: 048
     Dates: start: 20070606
  2. LITHIUM CARBONATE [Concomitant]
     Route: 048

REACTIONS (3)
  - DELIRIUM [None]
  - INSOMNIA [None]
  - NIGHTMARE [None]
